FAERS Safety Report 13243256 (Version 1)
Quarter: 2017Q1

REPORT INFORMATION
  Report Type: Spontaneous
  Country: US (occurrence: US)
  Receive Date: 20170217
  Receipt Date: 20170217
  Transmission Date: 20170428
  Serious: Yes (Hospitalization)
  Sender: FDA-Public Use
  Company Number: None

PATIENT
  Age: 65 Year
  Sex: Male
  Weight: 75.15 kg

DRUGS (1)
  1. JANUVIA [Suspect]
     Active Substance: SITAGLIPTIN PHOSPHATE
     Indication: DIABETES MELLITUS
     Route: 048
     Dates: start: 20161215, end: 20170212

REACTIONS (6)
  - Vomiting [None]
  - Abdominal distension [None]
  - Squamous cell carcinoma [None]
  - Contrast media reaction [None]
  - Renal disorder [None]
  - Pancreatitis [None]

NARRATIVE: CASE EVENT DATE: 20170212
